FAERS Safety Report 4313177-3 (Version None)
Quarter: 2004Q1

REPORT INFORMATION
  Report Type: 
  Country: None (occurrence: None)
  Receive Date: 20040304
  Receipt Date: 20040227
  Transmission Date: 20041129
  Serious: Yes (Death, Hospitalization)
  Sender: FDA-Public Use
  Company Number: 200402611

PATIENT
  Age: 30 Year
  Sex: Female

DRUGS (4)
  1. ACETAMINOPHEN [Suspect]
     Dosage: PO
     Route: 048
  2. CARISOPRODOL [Suspect]
     Dosage: PO
     Route: 048
  3. TORADOL [Suspect]
  4. PAXIL [Suspect]
     Dosage: PO
     Route: 048

REACTIONS (17)
  - BRAIN DEATH [None]
  - BRAIN OEDEMA [None]
  - CLONUS [None]
  - COMA [None]
  - DECEREBRATION [None]
  - HEPATIC CONGESTION [None]
  - HEPATIC FAILURE [None]
  - HEPATIC NECROSIS [None]
  - HEPATIC STEATOSIS [None]
  - HYPERREFLEXIA [None]
  - MENTAL STATUS CHANGES [None]
  - OVERDOSE [None]
  - POSTURING [None]
  - PUPIL FIXED [None]
  - RENAL FAILURE ACUTE [None]
  - SINUS TACHYCARDIA [None]
  - THROMBOCYTOPENIA [None]
